FAERS Safety Report 5525470-7 (Version None)
Quarter: 2007Q4

REPORT INFORMATION
  Report Type: 
  Country: None (occurrence: None)
  Receive Date: 20071120
  Receipt Date: 20071120
  Transmission Date: 20080405
  Serious: Yes (Life-Threatening, Other)
  Sender: FDA-Public Use
  Company Number: None

PATIENT
  Age: 30 Year
  Sex: Male
  Weight: 108.8633 kg

DRUGS (2)
  1. RITUXAN [Suspect]
  2. FLUDARABINE PHOSPHATE [Suspect]

REACTIONS (3)
  - HYPOGAMMAGLOBULINAEMIA [None]
  - SINUSITIS [None]
  - UVULITIS [None]
